FAERS Safety Report 7949077-7 (Version None)
Quarter: 2011Q4

REPORT INFORMATION
  Report Type: 
  Country: None (occurrence: None)
  Receive Date: 20111130
  Receipt Date: 20110824
  Transmission Date: 20120403
  Serious: No
  Sender: FDA-Public Use
  Company Number: US-BRISTOL-MYERS SQUIBB COMPANY-15997703

PATIENT
  Age: 33 Year
  Sex: Female
  Weight: 103 kg

DRUGS (1)
  1. KOMBIGLYZE XR [Suspect]
     Dosage: KOMBIGLYZE 5/500
     Dates: start: 20110817

REACTIONS (2)
  - ERYTHEMA [None]
  - PRURITUS [None]
